FAERS Safety Report 5225798-4 (Version None)
Quarter: 2007Q1

REPORT INFORMATION
  Report Type: 
  Country: None (occurrence: None)
  Receive Date: 20070130
  Receipt Date: 20070130
  Transmission Date: 20070707
  Serious: No
  Sender: FDA-Public Use
  Company Number: None

PATIENT
  Sex: Male

DRUGS (1)
  1. CANASA [Suspect]

REACTIONS (5)
  - ILL-DEFINED DISORDER [None]
  - LICHENOID KERATOSIS [None]
  - PURPURA [None]
  - RASH ERYTHEMATOUS [None]
  - THROMBOCYTOPENIA [None]
